FAERS Safety Report 5034240-8 (Version None)
Quarter: 2006Q2

REPORT INFORMATION
  Report Type: 
  Country: None (occurrence: None)
  Receive Date: 20060621
  Receipt Date: 20060613
  Transmission Date: 20061013
  Serious: Yes (Other)
  Sender: FDA-Public Use
  Company Number: 2006-164B

PATIENT
  Age: 66 Year
  Sex: Male
  Weight: 73.9363 kg

DRUGS (5)
  1. DAPSONE [Suspect]
     Indication: DERMATITIS HERPETIFORMIS
     Dosage: 50 MG TWICE DAILY PO
     Route: 048
  2. M-M-R II VACCINE [Suspect]
     Indication: PAPILLOMA VIRAL INFECTION
     Dosage: 10 VIALS +/- MONTHLY
  3. LIPITOR [Concomitant]
  4. GLUCOSAMINE [Concomitant]
  5. PRILOSEC [Concomitant]

REACTIONS (9)
  - ASTHENIA [None]
  - BLADDER DISTENSION [None]
  - CONDITION AGGRAVATED [None]
  - DERMATITIS HERPETIFORMIS [None]
  - DYSPNOEA [None]
  - FATIGUE [None]
  - HAEMOGLOBIN DECREASED [None]
  - SERUM SICKNESS [None]
  - YELLOW SKIN [None]
